FAERS Safety Report 8807222 (Version 1)
Quarter: 2012Q4

REPORT INFORMATION
  Report Type: 
  Country: US (occurrence: US)
  Receive Date: 20120925
  Receipt Date: 20120925
  Transmission Date: 20130627
  Serious: Yes (Life-Threatening, Hospitalization)
  Sender: FDA-Public Use
  Company Number: US-CELGENEUS-163-21880-12092473

PATIENT
  Age: 54 Year
  Sex: Male

DRUGS (3)
  1. REVLIMID [Suspect]
     Indication: MULTIPLE MYELOMA
     Dosage: 15 Milligram
     Route: 048
     Dates: start: 20110602
  2. REVLIMID [Suspect]
     Dosage: 10 Milligram
     Route: 048
     Dates: start: 201111
  3. REVLIMID [Suspect]
     Dosage: 11.25 Milligram
     Route: 048
     Dates: start: 201208

REACTIONS (2)
  - Loss of consciousness [Recovered/Resolved]
  - Cardiac fibrillation [Recovered/Resolved]
